FAERS Safety Report 8856203 (Version 1)
Quarter: 2012Q4

REPORT INFORMATION
  Report Type: Spontaneous
  Country: US (occurrence: None)
  Receive Date: 20121023
  Receipt Date: 20121023
  Transmission Date: 20130627
  Serious: No
  Sender: FDA-Public Use
  Company Number: None

PATIENT
  Sex: Female
  Weight: 70.31 kg

DRUGS (1)
  1. VANCOMYCIN [Suspect]
     Indication: CYST ASPIRATION
     Dosage: 1g IV
     Route: 042
     Dates: start: 20121003

REACTIONS (2)
  - Erythema [None]
  - Pruritus [None]
